FAERS Safety Report 5298313-7 (Version None)
Quarter: 2007Q2

REPORT INFORMATION
  Report Type: 
  Country: None (occurrence: None)
  Receive Date: 20070416
  Receipt Date: 20070320
  Transmission Date: 20071010
  Serious: Yes (Hospitalization, Other)
  Sender: FDA-Public Use
  Company Number: US-PFIZER INC-2005089403

PATIENT
  Sex: Male
  Weight: 81.6 kg

DRUGS (2)
  1. BEXTRA [Suspect]
     Indication: ARTHRALGIA
     Dates: start: 20030409, end: 20040315
  2. BEXTRA [Suspect]
     Indication: ARTHRITIS

REACTIONS (3)
  - IMPAIRED HEALING [None]
  - MUSCULAR WEAKNESS [None]
  - SURGERY [None]
